FAERS Safety Report 6085578-7 (Version None)
Quarter: 2009Q1

REPORT INFORMATION
  Report Type: 
  Country: None (occurrence: None)
  Receive Date: 20090217
  Receipt Date: 20090217
  Transmission Date: 20090719
  Serious: Yes (Hospitalization)
  Sender: FDA-Public Use
  Company Number: None

PATIENT
  Age: 47 Year
  Sex: Male
  Weight: 95.7 kg

DRUGS (5)
  1. TORADOL [Suspect]
     Indication: PAIN
     Dosage: 30MG X 3 DOSES IV BOLUS 11/7 AND 11/8 ONLY
     Route: 040
  2. ASPIRIN [Concomitant]
  3. AVODART [Concomitant]
  4. COZAAR [Concomitant]
  5. LIPITOR [Concomitant]

REACTIONS (1)
  - RENAL FAILURE ACUTE [None]
